FAERS Safety Report 22601923 (Version 2)
Quarter: 2023Q2

REPORT INFORMATION
  Report Type: Spontaneous
  Country: US (occurrence: US)
  Receive Date: 20230614
  Receipt Date: 20230626
  Transmission Date: 20230722
  Serious: No
  Sender: FDA-Public Use
  Company Number: US-SA-SAC20230613000417

PATIENT
  Age: 64 Year
  Sex: Female
  Weight: 97.5 kg

DRUGS (5)
  1. DUPIXENT [Suspect]
     Active Substance: DUPILUMAB
     Indication: Asthma
     Dosage: 200 MG, QOW
     Route: 058
     Dates: start: 20220707
  2. ALEVE [Concomitant]
     Active Substance: NAPROXEN SODIUM
  3. CLARITIN [Concomitant]
     Active Substance: LORATADINE
  4. CYANOCOBALAMIN [Concomitant]
     Active Substance: CYANOCOBALAMIN
  5. JANSSEN COVID-19 VACCINE [Concomitant]
     Active Substance: AD26.COV2.S

REACTIONS (5)
  - Fall [Unknown]
  - Humerus fracture [Unknown]
  - Head discomfort [Unknown]
  - Rhinorrhoea [Unknown]
  - Epistaxis [Unknown]

NARRATIVE: CASE EVENT DATE: 20230615
